FAERS Safety Report 7232508-8 (Version None)
Quarter: 2011Q1

REPORT INFORMATION
  Report Type: 
  Country: None (occurrence: None)
  Receive Date: 20110119
  Receipt Date: 20110110
  Transmission Date: 20110831
  Serious: Yes (Hospitalization, Other)
  Sender: FDA-Public Use
  Company Number: SE-US-EMD SERONO, INC.-7029983

PATIENT
  Sex: Female

DRUGS (2)
  1. REBIF [Suspect]
     Indication: RELAPSING-REMITTING MULTIPLE SCLEROSIS
     Dates: start: 20080101
  2. CRISOMET [Concomitant]
     Dates: start: 20100318

REACTIONS (3)
  - FAECAL INCONTINENCE [None]
  - CONVULSION [None]
  - LOSS OF CONSCIOUSNESS [None]
